FAERS Safety Report 9527243 (Version 2)
Quarter: 2013Q3

REPORT INFORMATION
  Report Type: Report from Study
  Country: US (occurrence: US)
  Receive Date: 20130917
  Receipt Date: 20130923
  Transmission Date: 20140515
  Serious: Yes (Other)
  Sender: FDA-Public Use
  Company Number: US-ROCHE-1275316

PATIENT
  Sex: Female
  Weight: 66.28 kg

DRUGS (9)
  1. AVASTIN [Suspect]
     Indication: OVARIAN CANCER
     Dosage: IN XA
     Route: 042
     Dates: start: 20130905
  2. TAXOTERE [Concomitant]
     Dosage: IN XA
     Route: 065
  3. CARBOPLATIN [Concomitant]
     Dosage: IN XA
     Route: 065
  4. PEPCID [Concomitant]
     Route: 042
  5. DEXAMETHASONE [Concomitant]
     Route: 065
  6. BENADRYL (UNITED STATES) [Concomitant]
     Route: 042
  7. ALOXI [Concomitant]
     Route: 042
  8. WELLBUTRIN [Concomitant]
     Indication: DEPRESSION
  9. ABILIFY [Concomitant]
     Indication: DEPRESSION

REACTIONS (5)
  - Neutropenia [Recovered/Resolved]
  - Mental disorder [Recovered/Resolved]
  - Fatigue [Recovered/Resolved]
  - Neutrophil count decreased [Unknown]
  - Fall [Unknown]
